FAERS Safety Report 10261602 (Version 1)
Quarter: 2014Q2

REPORT INFORMATION
  Report Type: Spontaneous
  Country: US (occurrence: None)
  Receive Date: 20140624
  Receipt Date: 20140624
  Transmission Date: 20141212
  Serious: Yes (Death)
  Sender: FDA-Public Use
  Company Number: None

PATIENT
  Age: 70 Year
  Sex: Female

DRUGS (16)
  1. REVLIMID 10 MG DAILY X21D/28D ORALLY [Suspect]
     Indication: LYMPHOMA
     Dosage: 10MG, DAILY, ORALLY
     Route: 048
     Dates: start: 20140505, end: 20140513
  2. LORAZEPAM [Concomitant]
  3. HYDROCODONE/APAP [Concomitant]
  4. ALLOPURINOL [Concomitant]
  5. DOCUSATE [Concomitant]
  6. ASA [Concomitant]
  7. ATENOLOL [Concomitant]
  8. CLONIDINE [Concomitant]
  9. GLIPIZIDE [Concomitant]
  10. KCL [Concomitant]
  11. NPH INSULIN [Concomitant]
  12. ATORVASTATIN [Concomitant]
  13. DILTIAZEM [Concomitant]
  14. LISINOPRIL [Concomitant]
  15. METFORMIN [Concomitant]
  16. FUROSEMIDE [Concomitant]

REACTIONS (3)
  - Septic shock [None]
  - Cardiac arrest [None]
  - Respiratory arrest [None]
